FAERS Safety Report 9149049 (Version 8)
Quarter: 2014Q2

REPORT INFORMATION
  Report Type: Report from Study
  Country: TH (occurrence: TH)
  Receive Date: 20130308
  Receipt Date: 20140618
  Transmission Date: 20141212
  Serious: Yes (Hospitalization)
  Sender: FDA-Public Use
  Company Number: TH-EISAI INC-E7389-03612-CLI-TH

PATIENT
  Age: 73 Year
  Sex: Female
  Weight: 58 kg

DRUGS (10)
  1. ERIBULIN [Suspect]
     Indication: SARCOMA
     Dosage: 2.1 MG
     Route: 041
     Dates: start: 20130128, end: 20130128
  2. ERIBULIN [Suspect]
     Dosage: 1.7 MG
     Route: 041
     Dates: start: 20130211, end: 20130311
  3. SENOKOT [Concomitant]
     Indication: CONSTIPATION
     Route: 048
     Dates: start: 20101111
  4. LORAZEPAM [Concomitant]
     Indication: INSOMNIA
     Route: 048
     Dates: start: 20130111
  5. TRAMADOL [Concomitant]
     Indication: PELVIC PAIN
     Route: 048
     Dates: start: 20130111
  6. MILK OF MAGNESIA [Concomitant]
     Indication: CONSTIPATION
     Route: 048
     Dates: start: 20101222
  7. BISACODYL [Concomitant]
     Indication: CONSTIPATION
     Route: 048
     Dates: start: 20130111
  8. AMLODIPINE [Concomitant]
     Indication: HYPERTENSION
     Route: 048
     Dates: start: 20130211
  9. TEARS NATURAL [Concomitant]
     Indication: DRY EYE
     Route: 047
     Dates: start: 20130111
  10. MAGNESIUM SULPHATE [Concomitant]
     Indication: HYPOMAGNESAEMIA
     Route: 048
     Dates: start: 20130128

REACTIONS (1)
  - Hyponatraemia [Recovering/Resolving]
